FAERS Safety Report 9482420 (Version 1)
Quarter: 2013Q3

REPORT INFORMATION
  Report Type: Report from Study
  Country: IT (occurrence: IT)
  Receive Date: 20130828
  Receipt Date: 20130828
  Transmission Date: 20140515
  Serious: Yes (Hospitalization)
  Sender: FDA-Public Use
  Company Number: IT-SANOFI-AVENTIS-2013SA085481

PATIENT
  Sex: 0

DRUGS (2)
  1. COLISTIMETHATE SODIUM [Suspect]
     Indication: ACINETOBACTER INFECTION
     Route: 042
  2. RIFAMPICIN [Suspect]
     Indication: ACINETOBACTER INFECTION
     Route: 042

REACTIONS (1)
  - Neurotoxicity [Unknown]
